FAERS Safety Report 4928538-9 (Version None)
Quarter: 2006Q1

REPORT INFORMATION
  Report Type: 
  Country: None (occurrence: None)
  Receive Date: 20060223
  Receipt Date: 20060210
  Transmission Date: 20060701
  Serious: Yes (Life-Threatening, Other)
  Sender: FDA-Public Use
  Company Number: US016832

PATIENT
  Sex: Female

DRUGS (2)
  1. GABITRIL [Suspect]
     Indication: TEMPORAL LOBE EPILEPSY
  2. ADDERALL 10 [Suspect]

REACTIONS (26)
  - ABNORMAL BEHAVIOUR [None]
  - AGGRESSION [None]
  - AGITATION [None]
  - ANTEROGRADE AMNESIA [None]
  - COGNITIVE DISORDER [None]
  - COMPULSIONS [None]
  - CONVULSION [None]
  - DELIRIUM [None]
  - DELUSION [None]
  - DRUG INTERACTION [None]
  - FALL [None]
  - FEAR [None]
  - FLASHBACK [None]
  - HALLUCINATION [None]
  - INJURY [None]
  - INSOMNIA [None]
  - LOSS OF CONSCIOUSNESS [None]
  - MAJOR DEPRESSION [None]
  - NIGHTMARE [None]
  - PAIN [None]
  - PARANOIA [None]
  - POST-TRAUMATIC STRESS DISORDER [None]
  - PSYCHOTIC DISORDER [None]
  - RETROGRADE AMNESIA [None]
  - SCAR [None]
  - SUICIDAL IDEATION [None]
